FAERS Safety Report 18495220 (Version 1)
Quarter: 2020Q4

REPORT INFORMATION
  Report Type: Spontaneous
  Country: US (occurrence: US)
  Receive Date: 20201111
  Receipt Date: 20201111
  Transmission Date: 20210114
  Serious: Yes (Disabling)
  Sender: FDA-Public Use
  Company Number: None

PATIENT
  Age: 78 Year
  Sex: Female
  Weight: 76.05 kg

DRUGS (6)
  1. VALSARTEN/HCTZ [Concomitant]
  2. NEXLETOL [Suspect]
     Active Substance: BEMPEDOIC ACID
     Indication: DRUG THERAPY
     Route: 048
     Dates: start: 20201002, end: 20201107
  3. VITAMIN C [Concomitant]
     Active Substance: ASCORBIC ACID
  4. SYNTHROID [Concomitant]
     Active Substance: LEVOTHYROXINE SODIUM
  5. VITAMIN D3 [Concomitant]
     Active Substance: CHOLECALCIFEROL
  6. CA [Concomitant]

REACTIONS (2)
  - Arthralgia [None]
  - Arthritis [None]

NARRATIVE: CASE EVENT DATE: 20201105
